FAERS Safety Report 14270210 (Version 1)
Quarter: 2017Q4

REPORT INFORMATION
  Report Type: Spontaneous
  Country: US (occurrence: US)
  Receive Date: 20171211
  Receipt Date: 20171211
  Transmission Date: 20180321
  Serious: Yes (Other)
  Sender: FDA-Public Use
  Company Number: US-OTSUKA-2015_017048

PATIENT
  Sex: Female

DRUGS (1)
  1. ABILIFY [Suspect]
     Active Substance: ARIPIPRAZOLE
     Indication: BIPOLAR DISORDER
     Dosage: 4 MG, QD
     Route: 048

REACTIONS (6)
  - Foot deformity [Unknown]
  - Mood swings [Unknown]
  - Foot operation [Unknown]
  - Underdose [Unknown]
  - Localised infection [Unknown]
  - Irritability [Unknown]
